FAERS Safety Report 13986349 (Version 2)
Quarter: 2017Q3

REPORT INFORMATION
  Report Type: Spontaneous
  Country: US (occurrence: US)
  Receive Date: 20170919
  Receipt Date: 20170929
  Transmission Date: 20171128
  Serious: Yes (Death)
  Sender: FDA-Public Use
  Company Number: US-UNITED THERAPEUTICS-UNT-2017-013393

PATIENT
  Sex: Male

DRUGS (14)
  1. ALBUTEROL SULFATE. [Concomitant]
     Active Substance: ALBUTEROL SULFATE
     Indication: PRODUCT USED FOR UNKNOWN INDICATION
     Dosage: 3 ML OF 0.083% EVERY 4 HOURS
  2. TYVASO [Suspect]
     Active Substance: TREPROSTINIL
     Dosage: 54 ?G, QID
  3. SILDENAFIL CITRATE. [Concomitant]
     Active Substance: SILDENAFIL CITRATE
     Indication: PULMONARY HYPERTENSION
     Dosage: 1 TAB, TID
     Route: 048
  4. TYVASO [Suspect]
     Active Substance: TREPROSTINIL
     Indication: PULMONARY ARTERIAL HYPERTENSION
     Dosage: 36 ?G, QID
     Dates: start: 20170609
  5. BUDESONIDE W/FORMOTEROL [Concomitant]
     Active Substance: BUDESONIDE\FORMOTEROL
     Indication: LUNG DISORDER
     Dosage: 2 PUFFS, TWICE A DAY
  6. LUTEIN                             /01638501/ [Concomitant]
     Active Substance: LUTEIN
     Indication: PRODUCT USED FOR UNKNOWN INDICATION
     Dosage: 1 TAB, EVERY DAY
     Route: 048
  7. BETAMETHASONE VALERATE. [Concomitant]
     Active Substance: BETAMETHASONE VALERATE
     Indication: RASH
     Dosage: UNK UNK, BID
     Route: 061
  8. PREDNISONE. [Concomitant]
     Active Substance: PREDNISONE
     Indication: DYSPNOEA
     Dosage: 1 TAB, EVERY DAY WITH FOOD
     Route: 048
  9. MORPHINE SULPHATE [Concomitant]
     Active Substance: MORPHINE SULFATE
     Indication: DYSPNOEA
     Dosage: 0.25 ML, Q3H
     Route: 048
  10. CETIRIZINE HCL [Concomitant]
     Active Substance: CETIRIZINE HYDROCHLORIDE
     Indication: SINUS DISORDER
     Dosage: 1 TAB, EVERY DAY
     Route: 048
  11. FUROSEMIDE. [Concomitant]
     Active Substance: FUROSEMIDE
     Indication: FLUID RETENTION
     Dosage: 1 TAB, EVERY DAY
     Route: 048
  12. TIOTROPIUM [Concomitant]
     Active Substance: TIOTROPIUM
     Indication: DYSPNOEA
     Dosage: 1 CAPSULE VIA INHALER EVERY EVENING
  13. APIXABAN [Concomitant]
     Active Substance: APIXABAN
     Indication: ANTICOAGULANT THERAPY
     Dosage: 1 TAB, BID
     Route: 048
  14. ASPIRIN                            /00002701/ [Concomitant]
     Active Substance: ASPIRIN
     Indication: PRODUCT USED FOR UNKNOWN INDICATION
     Dosage: 81 MG, EVERY DAY
     Route: 048

REACTIONS (2)
  - Dyspnoea [Unknown]
  - Death [Fatal]

NARRATIVE: CASE EVENT DATE: 2017
